FAERS Safety Report 6258427-1 (Version None)
Quarter: 2009Q3

REPORT INFORMATION
  Report Type: 
  Country: None (occurrence: None)
  Receive Date: 20090701
  Receipt Date: 20081201
  Transmission Date: 20100115
  Serious: Yes (Other)
  Sender: FDA-Public Use
  Company Number: 601071

PATIENT
  Age: 58 Year
  Sex: Female

DRUGS (1)
  1. KLONOPIN [Suspect]
     Indication: ANXIETY
     Dosage: 2 MG
     Dates: start: 19880101

REACTIONS (1)
  - DIARRHOEA [None]
